FAERS Safety Report 24158198 (Version 1)
Quarter: 2024Q3

REPORT INFORMATION
  Report Type: Spontaneous
  Country: ES (occurrence: ES)
  Receive Date: 20240731
  Receipt Date: 20240731
  Transmission Date: 20241016
  Serious: Yes (Other)
  Sender: ELI LILLY AND CO
  Company Number: None

PATIENT
  Age: 40 Year
  Sex: Female
  Weight: 65 kg

DRUGS (2)
  1. GALCANEZUMAB [Suspect]
     Active Substance: GALCANEZUMAB
     Indication: Migraine
     Dosage: 240 MG, OTHER (LOADING DOSE)
     Route: 058
     Dates: start: 20240222
  2. GALCANEZUMAB [Suspect]
     Active Substance: GALCANEZUMAB
     Dosage: UNK UNK, MONTHLY (1/M)
     Route: 058

REACTIONS (1)
  - Intermenstrual bleeding [Recovering/Resolving]

NARRATIVE: CASE EVENT DATE: 20240304
